FAERS Safety Report 4976259-9 (Version None)
Quarter: 2006Q2

REPORT INFORMATION
  Report Type: 
  Country: None (occurrence: None)
  Receive Date: 20060419
  Receipt Date: 20051101
  Transmission Date: 20061013
  Serious: Yes (Hospitalization)
  Sender: FDA-Public Use
  Company Number: PHBS2005JP16225

PATIENT
  Age: 79 Year
  Sex: Female
  Weight: 34 kg

DRUGS (10)
  1. PROTECADIN [Concomitant]
     Dosage: 20 MG/D
     Route: 048
  2. DEPAS [Concomitant]
     Dosage: 1 MG/D
     Route: 048
  3. DOGMATYL [Concomitant]
     Dosage: 90 MG/D
     Route: 048
  4. LENDORMIN [Concomitant]
     Dosage: 0.25 MG/D
     Route: 048
  5. ZYPREXA [Concomitant]
     Dosage: 1 MG/D
     Route: 048
  6. TOLEDOMIN [Concomitant]
     Dosage: 45 MG/D
     Route: 048
  7. TOLEDOMIN [Concomitant]
     Dosage: 15 MG/D
     Route: 048
  8. TOFRANIL [Suspect]
     Dosage: 25 MG/D
     Route: 048
     Dates: start: 20050914, end: 20050927
  9. TOFRANIL [Suspect]
     Dosage: 45 MG/D
     Route: 048
     Dates: start: 20050928, end: 20051024
  10. ARICEPT [Concomitant]
     Dosage: 5 MG/D
     Route: 048

REACTIONS (5)
  - ANOREXIA [None]
  - BLOOD ZINC DECREASED [None]
  - DECUBITUS ULCER [None]
  - DEPRESSION [None]
  - MELAENA [None]
